FAERS Safety Report 7985121-9 (Version None)
Quarter: 2011Q4

REPORT INFORMATION
  Report Type: 
  Country: None (occurrence: None)
  Receive Date: 20111216
  Receipt Date: 20111206
  Transmission Date: 20120403
  Serious: Yes (Hospitalization, Other)
  Sender: FDA-Public Use
  Company Number: PHHY2011CA96415

PATIENT
  Sex: Male

DRUGS (2)
  1. CHEMOTHERAPEUTICS [Concomitant]
     Dosage: UNK
  2. CLOZARIL [Suspect]
     Dosage: UNK
     Dates: start: 19961203

REACTIONS (9)
  - PETECHIAE [None]
  - COMMUNICATION DISORDER [None]
  - PLATELET COUNT DECREASED [None]
  - WHITE BLOOD CELL COUNT DECREASED [None]
  - PANCYTOPENIA [None]
  - HISTIOCYTOSIS HAEMATOPHAGIC [None]
  - CATATONIA [None]
  - MENTAL DISORDER [None]
  - ABNORMAL BEHAVIOUR [None]
